FAERS Safety Report 21435376 (Version 1)
Quarter: 2022Q4

REPORT INFORMATION
  Report Type: Spontaneous
  Country: ES (occurrence: ES)
  Receive Date: 20221010
  Receipt Date: 20221010
  Transmission Date: 20230113
  Serious: Yes (Other)
  Sender: FDA-Public Use
  Company Number: ES-AMNEAL PHARMACEUTICALS-2022-AMRX-02807

PATIENT
  Age: 43 Year
  Sex: Male

DRUGS (1)
  1. ARSENIC TRIOXIDE [Suspect]
     Active Substance: ARSENIC TRIOXIDE
     Indication: Acute myeloid leukaemia
     Route: 065

REACTIONS (2)
  - Demyelinating polyneuropathy [Unknown]
  - Toxicity to various agents [Recovering/Resolving]
